FAERS Safety Report 10370780 (Version 1)
Quarter: 2014Q3

REPORT INFORMATION
  Report Type: Spontaneous
  Country: US (occurrence: None)
  Receive Date: 20140806
  Receipt Date: 20140806
  Transmission Date: 20150326
  Serious: Yes (Other)
  Sender: FDA-Public Use
  Company Number: 2014EXPUS00217

PATIENT
  Age: 29 Year
  Sex: Female
  Weight: 59.4 kg

DRUGS (2)
  1. MARCAINE W/EPINEPHRINE (BUPIVACAINE HYDROCHLORIDE, EPINEHRINE) [Concomitant]
  2. EXPAREL [Suspect]
     Active Substance: BUPIVACAINE
     Indication: POSTOPERATIVE ANALGESIA
     Dosage: INFILLTRATION 10CC
     Dates: start: 20140603, end: 20140603

REACTIONS (8)
  - Skin discolouration [None]
  - Rash maculo-papular [None]
  - Post inflammatory pigmentation change [None]
  - Pruritus [None]
  - Postoperative wound infection [None]
  - Off label use [None]
  - Staphylococcal skin infection [None]
  - Rash erythematous [None]

NARRATIVE: CASE EVENT DATE: 20140603
